FAERS Safety Report 5624466-4 (Version None)
Quarter: 2008Q1

REPORT INFORMATION
  Report Type: 
  Country: None (occurrence: None)
  Receive Date: 20080208
  Receipt Date: 20080125
  Transmission Date: 20080703
  Serious: Yes (Hospitalization)
  Sender: FDA-Public Use
  Company Number: ENC200800018

PATIENT
  Age: 64 Year
  Sex: Female

DRUGS (6)
  1. ARGATROBAN [Suspect]
     Indication: HEPARIN-INDUCED THROMBOCYTOPENIA
     Dosage: INTRAVENOUS
     Route: 042
     Dates: start: 20080111, end: 20080118
  2. PREDNISONE TAB [Concomitant]
  3. PERCOCET [Concomitant]
  4. LOPRESSOR [Concomitant]
  5. ZOFRAN [Concomitant]
  6. ACETAMINOPHEN [Concomitant]

REACTIONS (1)
  - PULMONARY EMBOLISM [None]
